FAERS Safety Report 5156345-3 (Version None)
Quarter: 2006Q4

REPORT INFORMATION
  Report Type: 
  Country: None (occurrence: None)
  Receive Date: 20061122
  Receipt Date: 20061117
  Transmission Date: 20070319
  Serious: Yes (Hospitalization)
  Sender: FDA-Public Use
  Company Number: NO-GLAXOSMITHKLINE-B0447509A

PATIENT
  Sex: Male
  Weight: 2.2 kg

DRUGS (4)
  1. SERETIDE [Suspect]
     Indication: ASTHMA
  2. CIPROFLOXACIN [Concomitant]
     Indication: PNEUMONIA
     Dates: start: 20060222, end: 20060301
  3. AIROMIR [Concomitant]
     Indication: DRUG USE FOR UNKNOWN INDICATION
  4. IMACILLIN [Concomitant]
     Indication: PNEUMONIA
     Dates: start: 20060222, end: 20060301

REACTIONS (2)
  - DRUG EXPOSURE DURING PREGNANCY [None]
  - FOETAL GROWTH RETARDATION [None]
